FAERS Safety Report 9532225 (Version 1)
Quarter: 2013Q3

REPORT INFORMATION
  Report Type: Spontaneous
  Country: FR (occurrence: FR)
  Receive Date: 20130918
  Receipt Date: 20130918
  Transmission Date: 20140515
  Serious: Yes (Hospitalization)
  Sender: FDA-Public Use
  Company Number: FR-ABBVIE-13P-056-1148047-00

PATIENT
  Age: 31 Year
  Sex: Female

DRUGS (1)
  1. HUMIRA [Suspect]
     Indication: CROHN^S DISEASE
     Route: 058
     Dates: start: 201109, end: 20130711

REACTIONS (5)
  - Uveitis [Recovered/Resolved]
  - Skin exfoliation [Unknown]
  - Prurigo [Unknown]
  - Tonsillitis [Unknown]
  - Rash vesicular [Unknown]
